FAERS Safety Report 7989845-9 (Version None)
Quarter: 2011Q4

REPORT INFORMATION
  Report Type: 
  Country: None (occurrence: None)
  Receive Date: 20111219
  Receipt Date: 20110718
  Transmission Date: 20120403
  Serious: No
  Sender: FDA-Public Use
  Company Number: US-ASTRAZENECA-2011SE42787

PATIENT
  Sex: Male

DRUGS (3)
  1. CRESTOR [Suspect]
     Route: 048
     Dates: start: 20110701
  2. CRESTOR [Suspect]
     Route: 048
  3. NEXIUM [Concomitant]

REACTIONS (3)
  - MUSCULAR WEAKNESS [None]
  - DYSPEPSIA [None]
  - CONSTIPATION [None]
